FAERS Safety Report 9104422 (Version 3)
Quarter: 2013Q2

REPORT INFORMATION
  Report Type: Spontaneous
  Country: US (occurrence: US)
  Receive Date: 20130220
  Receipt Date: 20130507
  Transmission Date: 20140414
  Serious: Yes (Other)
  Sender: FDA-Public Use
  Company Number: US-PFIZER INC-2013061711

PATIENT
  Age: 63 Year
  Sex: Male
  Weight: 96.6 kg

DRUGS (15)
  1. XELJANZ [Suspect]
     Indication: RHEUMATOID ARTHRITIS
     Dosage: 5 MG, 2X/DAY
     Dates: start: 201301, end: 20130128
  2. XELJANZ [Suspect]
     Dosage: 5 MG, 2X/DAY
     Route: 048
     Dates: start: 201302
  3. XELJANZ [Suspect]
     Dosage: 5 MG, 2X/DAY
     Route: 048
     Dates: start: 201302
  4. ZOCOR [Concomitant]
     Dosage: 20 MG, UNK
  5. EFEXOR XR [Concomitant]
     Dosage: 150 MG, UNK
  6. BUTORPHANOL [Concomitant]
     Dosage: 10 MG/ML, UNK
  7. PREDNISONE [Concomitant]
     Dosage: 5 MG, UNK
  8. CARVEDILOL [Concomitant]
     Dosage: 25 MG, UNK
  9. FENOFIBRATE [Concomitant]
     Dosage: 54 MG, UNK
  10. CITRUCEL [Concomitant]
     Dosage: 500 MG, UNK
  11. LISINOPRIL [Concomitant]
     Dosage: 20 MG, UNK
  12. FLONASE [Concomitant]
     Dosage: 0.05 %, UNK
  13. POTASSIUM CITRATE [Concomitant]
     Dosage: 10 MEQ, UNK
  14. AMITRIPTYLINE HYDROCHLORIDE [Concomitant]
     Dosage: 10 MG, UNK
  15. LORTAB [Concomitant]
     Dosage: 7.5-500

REACTIONS (2)
  - Gastric ulcer [Unknown]
  - Dyspepsia [Recovered/Resolved]
